FAERS Safety Report 25887867 (Version 1)
Quarter: 2025Q4

REPORT INFORMATION
  Report Type: Spontaneous
  Country: CN (occurrence: CN)
  Receive Date: 20251007
  Receipt Date: 20251007
  Transmission Date: 20260117
  Serious: Yes (Other)
  Sender: BAXTER
  Company Number: None

PATIENT
  Age: 65 Year
  Sex: Female
  Weight: 43 kg

DRUGS (5)
  1. CYCLOPHOSPHAMIDE [Suspect]
     Active Substance: CYCLOPHOSPHAMIDE
     Indication: Breast cancer female
     Dosage: 780 MG, QD
     Route: 041
     Dates: start: 20250917, end: 20250917
  2. SODIUM CHLORIDE [Suspect]
     Active Substance: SODIUM CHLORIDE
     Dosage: 200 ML, QD (WITH PACLITAXEL)
     Route: 034
     Dates: start: 20250913, end: 20250913
  3. PIRARUBICIN HYDROCHLORIDE [Suspect]
     Active Substance: PIRARUBICIN HYDROCHLORIDE
     Indication: Breast cancer female
     Dosage: 120 MG, QD
     Route: 041
     Dates: start: 20250917, end: 20250917
  4. PACLITAXEL [Suspect]
     Active Substance: PACLITAXEL
     Indication: Breast cancer female
     Dosage: 90 MG, QD
     Route: 034
     Dates: start: 20250913, end: 20250913
  5. PACLITAXEL [Suspect]
     Active Substance: PACLITAXEL
     Indication: Pleural effusion

REACTIONS (3)
  - Myelosuppression [Unknown]
  - Anaemia [Unknown]
  - Red blood cell count decreased [Unknown]

NARRATIVE: CASE EVENT DATE: 20250920
